FAERS Safety Report 23394005 (Version 1)
Quarter: 2024Q1

REPORT INFORMATION
  Report Type: Report from Study
  Country: AR (occurrence: AR)
  Receive Date: 20240111
  Receipt Date: 20240111
  Transmission Date: 20240410
  Serious: Yes (Death, Hospitalization)
  Sender: FDA-Public Use
  Company Number: AR-Merck Healthcare KGaA-2024001047

PATIENT
  Age: 65 Year
  Sex: Female

DRUGS (1)
  1. CETUXIMAB [Suspect]
     Active Substance: CETUXIMAB
     Indication: Colorectal cancer
     Dosage: 500 MG/M2, 2/M
     Route: 042
     Dates: start: 20230818

REACTIONS (7)
  - Respiratory arrest [Fatal]
  - Yellow skin [Unknown]
  - Tremor [Unknown]
  - Pain [Unknown]
  - Decreased appetite [Unknown]
  - Epistaxis [Unknown]
  - Fatigue [Unknown]

NARRATIVE: CASE EVENT DATE: 20231208
